FAERS Safety Report 4854887-9 (Version None)
Quarter: 2005Q4

REPORT INFORMATION
  Report Type: 
  Country: None (occurrence: None)
  Receive Date: 20051215
  Receipt Date: 20051124
  Transmission Date: 20060501
  Serious: Yes (Other)
  Sender: FDA-Public Use
  Company Number: PHBS2005ZA17302

PATIENT
  Age: 24 Year
  Sex: Female
  Weight: 64 kg

DRUGS (6)
  1. ZELNORM [Suspect]
     Indication: CONSTIPATION
     Dosage: 12 MG/DAY
     Route: 048
     Dates: start: 20051123
  2. LAMICTAL [Concomitant]
  3. PHENYTOIN [Concomitant]
  4. EPILIM [Concomitant]
  5. RIVOTRIL [Concomitant]
  6. TEGRETOL [Concomitant]

REACTIONS (2)
  - EPILEPSY [None]
  - STATUS EPILEPTICUS [None]
